FAERS Safety Report 6780119-0 (Version None)
Quarter: 2010Q2

REPORT INFORMATION
  Report Type: 
  Country: None (occurrence: None)
  Receive Date: 20100618
  Receipt Date: 20100609
  Transmission Date: 20101027
  Serious: Yes (Hospitalization)
  Sender: FDA-Public Use
  Company Number: AU-PURDUE-USA-2010-0043532

PATIENT
  Sex: Female

DRUGS (5)
  1. OXYCONTIN [Suspect]
     Indication: COMPLEX REGIONAL PAIN SYNDROME
     Dosage: 60 MG, DAILY
     Route: 048
     Dates: start: 20090702, end: 20100501
  2. MS CONTIN [Suspect]
     Indication: DRUG USE FOR UNKNOWN INDICATION
     Dosage: UNK
     Dates: start: 20100501, end: 20100501
  3. PANADOL OSTEO [Concomitant]
     Indication: DRUG USE FOR UNKNOWN INDICATION
  4. FRISIUM [Concomitant]
     Indication: DRUG USE FOR UNKNOWN INDICATION
     Dosage: UNK
     Dates: start: 20080101
  5. KETAMINE [Concomitant]
     Indication: DRUG USE FOR UNKNOWN INDICATION
     Dosage: UNK
     Dates: start: 20100501, end: 20100501

REACTIONS (10)
  - CHEST PAIN [None]
  - DIZZINESS [None]
  - FAECALOMA [None]
  - HYPERHIDROSIS [None]
  - HYPERVENTILATION [None]
  - OROPHARYNGEAL PAIN [None]
  - THYROID FUNCTION TEST ABNORMAL [None]
  - URTICARIA [None]
  - VAGINAL HAEMORRHAGE [None]
  - VOMITING [None]
